FAERS Safety Report 8453858-3 (Version None)
Quarter: 2012Q2

REPORT INFORMATION
  Report Type: 
  Country: None (occurrence: None)
  Receive Date: 20120620
  Receipt Date: 20120613
  Transmission Date: 20120825
  Serious: Yes (Life-Threatening)
  Sender: FDA-Public Use
  Company Number: ES-JHP PHARMACEUTICALS, LLC-JHP201200315

PATIENT

DRUGS (1)
  1. COLY-MYCIN M [Suspect]

REACTIONS (1)
  - HYPOKALAEMIA [None]
